FAERS Safety Report 6362167-8 (Version None)
Quarter: 2009Q3

REPORT INFORMATION
  Report Type: 
  Country: None (occurrence: None)
  Receive Date: 20090918
  Receipt Date: 20090910
  Transmission Date: 20100115
  Serious: Yes (Hospitalization)
  Sender: FDA-Public Use
  Company Number: FR-MERCK-0909FRA00036

PATIENT
  Age: 58 Year
  Sex: Male

DRUGS (6)
  1. VYTORIN [Suspect]
     Route: 048
     Dates: start: 20040101, end: 20090101
  2. CLOPIDOGREL BISULFATE [Concomitant]
     Route: 065
  3. LISINOPRIL [Concomitant]
     Route: 065
  4. ASPIRIN LYSINE [Concomitant]
     Route: 065
  5. BISOPROLOL FUMARATE [Concomitant]
     Route: 065
  6. ATENOLOL [Concomitant]
     Route: 065

REACTIONS (1)
  - LYMPHOMA [None]
